FAERS Safety Report 8549698 (Version 3)
Quarter: 2012Q4

REPORT INFORMATION
  Report Type: 
  Country: DE (occurrence: DE)
  Receive Date: 20120507
  Receipt Date: 20120903
  Transmission Date: 20130627
  Serious: Yes (Other)
  Sender: FDA-Public Use
  Company Number: PHHY2012DE038002

PATIENT
  Sex: Female

DRUGS (3)
  1. ACLASTA [Suspect]
     Indication: OSTEOPOROSIS
     Dosage: 5 mg,
     Route: 042
     Dates: start: 201006
  2. ACLASTA [Suspect]
     Dosage: 5 mg,
     Route: 042
     Dates: start: 20110721
  3. CALCIUM [Concomitant]
     Indication: OSTEOPOROSIS
     Dosage: 1 DF, BID
     Route: 048
     Dates: start: 2010

REACTIONS (5)
  - Gingival infection [Unknown]
  - Tooth disorder [Unknown]
  - Toothache [Unknown]
  - Ear pain [Unknown]
  - Inflammation [Unknown]
